FAERS Safety Report 24760782 (Version 2)
Quarter: 2024Q4

REPORT INFORMATION
  Report Type: Spontaneous
  Country: US (occurrence: US)
  Receive Date: 20241220
  Receipt Date: 20241226
  Transmission Date: 20250114
  Serious: Yes (Hospitalization)
  Sender: LUNDBECK
  Company Number: US-LUNDBECK-DKLU4008091

PATIENT

DRUGS (3)
  1. SABRIL [Suspect]
     Active Substance: VIGABATRIN
     Indication: Partial seizures
     Dosage: 1500 MILLIGRAM
     Route: 048
     Dates: start: 201607
  2. SABRIL [Suspect]
     Active Substance: VIGABATRIN
     Indication: Focal dyscognitive seizures
  3. SABRIL [Suspect]
     Active Substance: VIGABATRIN
     Indication: Epilepsy

REACTIONS (4)
  - Dizziness [Unknown]
  - Abdominal discomfort [Unknown]
  - Vomiting [Unknown]
  - Nausea [Unknown]

NARRATIVE: CASE EVENT DATE: 20240927
